FAERS Safety Report 5183602-7 (Version None)
Quarter: 2006Q4

REPORT INFORMATION
  Report Type: 
  Country: None (occurrence: None)
  Receive Date: 20061220
  Receipt Date: 20061213
  Transmission Date: 20070319
  Serious: Yes (Disabling)
  Sender: FDA-Public Use
  Company Number: US-MERCK-0612USA02684

PATIENT
  Age: 73 Year
  Sex: Female

DRUGS (9)
  1. FOSAMAX PLUS D [Suspect]
     Indication: OSTEOPOROSIS
     Route: 048
     Dates: start: 20061122, end: 20061206
  2. DIOVAN [Concomitant]
     Route: 065
  3.  [Concomitant]
     Route: 065
  4.  [Concomitant]
     Route: 065
  5. FLOVENT [Concomitant]
     Route: 065
  6.  [Concomitant]
     Route: 065
  7. PRILOSEC OTC [Concomitant]
     Route: 065
  8. TUMS [Concomitant]
     Route: 065
  9. CLARITIN [Concomitant]
     Route: 065

REACTIONS (3)
  - ARTHRALGIA [None]
  - FEELING ABNORMAL [None]
  - NECK PAIN [None]
